FAERS Safety Report 5646534-3 (Version None)
Quarter: 2008Q1

REPORT INFORMATION
  Report Type: 
  Country: None (occurrence: None)
  Receive Date: 20080227
  Receipt Date: 20080221
  Transmission Date: 20080703
  Serious: Yes (Hospitalization)
  Sender: FDA-Public Use
  Company Number: 2008SP003822

PATIENT
  Age: 43 Year
  Sex: Female
  Weight: 58 kg

DRUGS (2)
  1. PEG-INTRON [Suspect]
     Indication: HEPATITIS C
     Dosage: 100 MCG;QW;SC
     Route: 058
     Dates: start: 20071201
  2. REBETOL [Suspect]
     Indication: HEPATITIS C
     Dosage: 600 MG;QD; PO
     Route: 048
     Dates: start: 20071201

REACTIONS (2)
  - DIZZINESS [None]
  - LOSS OF PROPRIOCEPTION [None]
